FAERS Safety Report 6808796-6 (Version None)
Quarter: 2010Q2

REPORT INFORMATION
  Report Type: 
  Country: None (occurrence: None)
  Receive Date: 20100630
  Receipt Date: 20091106
  Transmission Date: 20101027
  Serious: No
  Sender: FDA-Public Use
  Company Number: US-PFIZER INC-2009273680

PATIENT
  Sex: Male
  Weight: 93 kg

DRUGS (3)
  1. VIAGRA [Suspect]
     Indication: ERECTILE DYSFUNCTION
     Dosage: 50 MG, UNK
  2. PRILOSEC [Concomitant]
     Dosage: UNK
  3. AVODART [Concomitant]
     Dosage: UNK

REACTIONS (4)
  - DRUG INEFFECTIVE [None]
  - DYSPEPSIA [None]
  - EXPIRED DRUG ADMINISTERED [None]
  - FLUSHING [None]
